FAERS Safety Report 5231847-X (Version None)
Quarter: 2007Q1

REPORT INFORMATION
  Report Type: 
  Country: None (occurrence: None)
  Receive Date: 20070206
  Receipt Date: 20070129
  Transmission Date: 20070707
  Serious: Yes (Hospitalization, Other)
  Sender: FDA-Public Use
  Company Number: US-PFIZER INC-2006144088

PATIENT
  Sex: Female

DRUGS (3)
  1. QUINAPRIL HCL [Suspect]
     Indication: HYPERTENSION
  2. CATAPRES [Suspect]
     Indication: HYPERTENSION
  3. ATIVAN [Suspect]

REACTIONS (4)
  - ASTHMA [None]
  - BLOOD PRESSURE INADEQUATELY CONTROLLED [None]
  - FOAMING AT MOUTH [None]
  - NIGHTMARE [None]
